FAERS Safety Report 11167101 (Version 1)
Quarter: 2015Q2

REPORT INFORMATION
  Report Type: Spontaneous
  Country: IT (occurrence: IT)
  Receive Date: 20150605
  Receipt Date: 20150605
  Transmission Date: 20150821
  Serious: Yes (Death)
  Sender: FDA-Public Use
  Company Number: IT-CELGENE-ITA-2015060015

PATIENT

DRUGS (1)
  1. AZACITIDINE. [Suspect]
     Active Substance: AZACITIDINE
     Indication: MYELODYSPLASTIC SYNDROME
     Route: 050

REACTIONS (8)
  - Myelodysplastic syndrome [Fatal]
  - Sepsis [Fatal]
  - Pneumonia [Fatal]
  - Graft versus host disease [Unknown]
  - No therapeutic response [Unknown]
  - Death [Fatal]
  - Myelodysplastic syndrome [Unknown]
  - Acute myeloid leukaemia [Fatal]
